FAERS Safety Report 11996178 (Version 1)
Quarter: 2016Q1

REPORT INFORMATION
  Report Type: Spontaneous
  Country: US (occurrence: US)
  Receive Date: 20160203
  Receipt Date: 20160203
  Transmission Date: 20160526
  Serious: No
  Sender: FDA-Public Use
  Company Number: US-MALLINCKRODT-T201501498

PATIENT
  Age: 68 Year
  Sex: Male

DRUGS (1)
  1. OPTIMARK [Suspect]
     Active Substance: GADOVERSETAMIDE
     Indication: DIAGNOSTIC PROCEDURE
     Dosage: 10 ML, SINGLE
     Route: 042
     Dates: start: 20150226, end: 20150226

REACTIONS (3)
  - Chills [Unknown]
  - Pain [Unknown]
  - Pyrexia [Unknown]

NARRATIVE: CASE EVENT DATE: 20150227
